FAERS Safety Report 13707424 (Version 1)
Quarter: 2017Q2

REPORT INFORMATION
  Report Type: Spontaneous
  Country: CH (occurrence: CH)
  Receive Date: 20170630
  Receipt Date: 20170630
  Transmission Date: 20170830
  Serious: Yes (Other)
  Sender: FDA-Public Use
  Company Number: CH-AMGEN-CHESP2017092861

PATIENT
  Sex: Female

DRUGS (1)
  1. PROLIA [Suspect]
     Active Substance: DENOSUMAB
     Indication: OSTEOPOROSIS
     Dosage: UNK
     Route: 065

REACTIONS (10)
  - Inflammation of wound [Unknown]
  - Tooth extraction [Unknown]
  - Pulpitis dental [Unknown]
  - Influenza like illness [Unknown]
  - Tooth abscess [Unknown]
  - Osteitis [Unknown]
  - Dental care [Unknown]
  - Stomatitis [Unknown]
  - Tooth infection [Unknown]
  - Bone cyst [Unknown]

NARRATIVE: CASE EVENT DATE: 2013
